FAERS Safety Report 26141467 (Version 1)
Quarter: 2025Q4

REPORT INFORMATION
  Report Type: Spontaneous
  Country: US (occurrence: US)
  Receive Date: 20251210
  Receipt Date: 20251210
  Transmission Date: 20260117
  Serious: No
  Sender: RADIUS PHARM
  Company Number: US-RADIUS HEALTH INC.-US-RADIUS-25054814

PATIENT
  Sex: Female

DRUGS (1)
  1. TYMLOS [Suspect]
     Active Substance: ABALOPARATIDE
     Indication: Bone density abnormal
     Dosage: 80 MICROGRAM, QD
     Route: 058
     Dates: start: 202212

REACTIONS (5)
  - Chest discomfort [Not Recovered/Not Resolved]
  - Back pain [Not Recovered/Not Resolved]
  - Headache [Not Recovered/Not Resolved]
  - Palpitations [Not Recovered/Not Resolved]
  - Therapy interrupted [Unknown]
